FAERS Safety Report 9843955 (Version 1)
Quarter: 2013Q4

REPORT INFORMATION
  Report Type: Spontaneous
  Country: US (occurrence: None)
  Receive Date: 20131223
  Receipt Date: 20131223
  Transmission Date: 20140711
  Serious: No
  Sender: FDA-Public Use
  Company Number: 1000049909

PATIENT
  Age: 78 Year
  Sex: Female

DRUGS (15)
  1. LINZESS (LINACLOTIDE) (145 MICROGRAM, CAPSULES) [Suspect]
     Indication: CONSTIPATION
     Dosage: 145 MCG (145 MCG, 1 IN 1 D), ORAL
     Route: 048
     Dates: start: 201308, end: 20130828
  2. LEVOTHYROXINE (LEVOTHYROXINE SODIUM) (LEVOTHYROXINE SODIUM) [Concomitant]
  3. OMEPRAZOLE (OMEPRAZOLE) (OMEPRAZOLE) [Concomitant]
  4. CARBAMAZEPINE (CARBAMAZEPINE) (CARBAMAZEPINE) [Concomitant]
  5. AMLODIPINE/HYDROCHLOROTHIAZIDE (AMLODIPINE, HYDROCHLOROTHIAZIDE) (AMLODIPINE, HYDROCHLOROTHIAZIDE) [Concomitant]
  6. PREDNISONE (PREDNISONE) (PREDNISONE) [Concomitant]
  7. FLUCONAZOLE (FLUCONAZOLE) (FLUCONAZOLE) [Concomitant]
  8. CIPROFLOXACIN (CIPROFLOXACIN) (CIPROFLOXACIN) [Concomitant]
  9. FLUOXETINE (FLUOXETINE) (FLUOXETINE) [Concomitant]
  10. VITAMIN D3 (COLECALCIFEROL) (COLECALCIFEROL) [Concomitant]
  11. BIOTIN (BIOTIN) (BIOTIN) [Concomitant]
  12. ASPIRIN (ACETYLSALICYLIC ACID) (ACETYLSALICYLIC ACID) [Concomitant]
  13. CALCIUM (CALCIUM) (CALCIUM) [Concomitant]
  14. MAGNESIUM (MAGNESIIUM) (MAGNESIUM) [Concomitant]
  15. ZINC (ZINC) (ZINC) [Concomitant]

REACTIONS (1)
  - Alopecia [None]
